FAERS Safety Report 10221467 (Version 1)
Quarter: 2014Q1

REPORT INFORMATION
  Report Type: Spontaneous
  Country: US (occurrence: None)
  Receive Date: 20140306
  Receipt Date: 20140306
  Transmission Date: 20141002
  Serious: Yes (Other)
  Sender: FDA-Public Use
  Company Number: 163-21880-13101409

PATIENT
  Age: 76 Year
  Sex: Male

DRUGS (1)
  1. REVLIMID (LENALIDOMIDE) (10 MILLIGRAM, CAPSULES) [Suspect]
     Indication: MYELODYSPLASTIC SYNDROME
     Dosage: 10 MG, 14 IN 21 D, PO?08/15/2013 - TEMPORARILY INTERRUPTED
     Route: 048
     Dates: start: 20130815

REACTIONS (1)
  - Full blood count decreased [None]
